FAERS Safety Report 10763315 (Version 1)
Quarter: 2015Q1

REPORT INFORMATION
  Report Type: Spontaneous
  Country: FR (occurrence: FR)
  Receive Date: 20150204
  Receipt Date: 20150204
  Transmission Date: 20150721
  Serious: Yes (Hospitalization, Other)
  Sender: FDA-Public Use
  Company Number: FR-GLAXOSMITHKLINE INC.-FR2015GSK013163

PATIENT
  Age: 11 Year
  Sex: Male
  Weight: 27 kg

DRUGS (6)
  1. LAMICTAL [Suspect]
     Active Substance: LAMOTRIGINE
     Indication: EPILEPSY
     Dosage: UNK
     Route: 048
     Dates: start: 201102, end: 201204
  2. ZARONTIN [Suspect]
     Active Substance: ETHOSUXIMIDE
     Indication: EPILEPSY
     Dosage: UNK
     Route: 048
     Dates: start: 201201, end: 201412
  3. VANCOMYCIN [Concomitant]
     Active Substance: VANCOMYCIN
     Indication: SUBDIAPHRAGMATIC ABSCESS
     Dosage: UNK
     Dates: start: 201404
  4. VALPROATE SODIUM. [Suspect]
     Active Substance: VALPROATE SODIUM
     Indication: EPILEPSY
     Dosage: UNK
     Route: 048
     Dates: start: 201010, end: 201410
  5. TIENAM [Concomitant]
     Active Substance: CILASTATIN SODIUM\IMIPENEM
     Indication: SUBDIAPHRAGMATIC ABSCESS
     Dosage: UNK
     Dates: start: 201404
  6. VFEND [Concomitant]
     Active Substance: VORICONAZOLE
     Indication: SUBDIAPHRAGMATIC ABSCESS
     Dosage: UNK
     Dates: start: 201404

REACTIONS (1)
  - Crohn^s disease [Recovering/Resolving]

NARRATIVE: CASE EVENT DATE: 201412
